FAERS Safety Report 13334513 (Version 3)
Quarter: 2017Q2

REPORT INFORMATION
  Report Type: Spontaneous
  Country: ES (occurrence: ES)
  Receive Date: 20170314
  Receipt Date: 20170505
  Transmission Date: 20170830
  Serious: Yes (Life-Threatening, Hospitalization)
  Sender: FDA-Public Use
  Company Number: ES-SA-2017SA038958

PATIENT
  Age: 50 Year
  Sex: Female

DRUGS (38)
  1. DEXAMETHASONE. [Concomitant]
     Active Substance: DEXAMETHASONE
     Route: 065
     Dates: start: 20160429, end: 20160817
  2. DUMIROX [Concomitant]
     Active Substance: FLUVOXAMINE MALEATE
     Route: 065
     Dates: start: 20160912
  3. PIPERACILLIN [Concomitant]
     Active Substance: PIPERACILLIN
     Indication: PROPHYLAXIS OF NAUSEA AND VOMITING
     Route: 065
     Dates: start: 20170119, end: 20170129
  4. DOPAMINE [Concomitant]
     Active Substance: DOPAMINE\DOPAMINE HYDROCHLORIDE
     Indication: ANURIA
     Route: 065
     Dates: start: 20170123, end: 20170123
  5. IRON [Concomitant]
     Active Substance: IRON
     Indication: IRON DEFICIENCY
     Route: 065
  6. MAGNESIUM [Concomitant]
     Active Substance: MAGNESIUM
     Indication: HYPOMAGNESAEMIA
     Route: 065
  7. CLEXANE [Suspect]
     Active Substance: ENOXAPARIN SODIUM
     Indication: PORTAL VEIN THROMBOSIS
     Route: 065
     Dates: start: 20170120, end: 20170120
  8. VEMURAFENIB [Suspect]
     Active Substance: VEMURAFENIB
     Indication: COLORECTAL CANCER METASTATIC
     Route: 048
     Dates: start: 20160914, end: 20160914
  9. DEXCLORFENIRAMINA [Concomitant]
     Route: 065
     Dates: start: 20160914
  10. PENTASA [Concomitant]
     Active Substance: MESALAMINE
     Route: 065
     Dates: start: 20160912
  11. VALSARTAN. [Concomitant]
     Active Substance: VALSARTAN
     Route: 065
  12. GRANISETRON HYDROCHLORIDE. [Concomitant]
     Active Substance: GRANISETRON HYDROCHLORIDE
     Route: 065
     Dates: start: 20160502, end: 20160517
  13. SECALIP [Concomitant]
     Active Substance: FENOFIBRATE
     Route: 065
  14. PIPERACILLIN [Concomitant]
     Active Substance: PIPERACILLIN
     Indication: PROPHYLAXIS OF NAUSEA AND VOMITING
     Route: 065
     Dates: start: 20160927
  15. TAZOBACTAM [Concomitant]
     Active Substance: TAZOBACTAM
     Indication: BIOPSY LIVER
     Route: 065
     Dates: start: 20170119
  16. CANCIDAS [Concomitant]
     Active Substance: CASPOFUNGIN ACETATE
     Route: 065
     Dates: start: 20170127
  17. TIMOLOL. [Concomitant]
     Active Substance: TIMOLOL
     Route: 065
     Dates: start: 20160912
  18. METRONIDAZOL [Concomitant]
     Active Substance: METRONIDAZOLE
     Route: 065
     Dates: start: 20170123
  19. CLEXANE [Suspect]
     Active Substance: ENOXAPARIN SODIUM
     Indication: PORTAL VEIN THROMBOSIS
     Route: 065
     Dates: start: 20160826, end: 20170117
  20. CLEXANE [Suspect]
     Active Substance: ENOXAPARIN SODIUM
     Indication: PORTAL VEIN THROMBOSIS
     Route: 065
     Dates: start: 20170128, end: 20170223
  21. CETUXIMAB. [Suspect]
     Active Substance: CETUXIMAB
     Indication: COLORECTAL CANCER METASTATIC
     Route: 042
     Dates: start: 20160914, end: 20160914
  22. 5-FU [Suspect]
     Active Substance: FLUOROURACIL
     Indication: COLORECTAL CANCER METASTATIC
     Route: 042
     Dates: start: 20160914, end: 20160914
  23. BATMEN [Concomitant]
     Route: 065
     Dates: start: 20160913
  24. DEPRAX [Concomitant]
     Active Substance: TRAZODONE HYDROCHLORIDE
     Route: 065
     Dates: start: 20160913
  25. NOLOTIL [Concomitant]
     Active Substance: METAMIZOLE
     Indication: BIOPSY LIVER
     Route: 065
     Dates: start: 20170121, end: 20170121
  26. QUETIAPINE. [Concomitant]
     Active Substance: QUETIAPINE
     Indication: DELIRIUM
     Route: 065
     Dates: start: 20170201, end: 20170201
  27. DEXAMETHASONE. [Concomitant]
     Active Substance: DEXAMETHASONE
     Route: 065
     Dates: start: 20160914
  28. PRIMPERAN [Concomitant]
     Active Substance: METOCLOPRAMIDE HYDROCHLORIDE
     Route: 065
     Dates: start: 20160927
  29. TRAVOPROST. [Concomitant]
     Active Substance: TRAVOPROST
     Route: 065
     Dates: start: 20160912
  30. INSULIN [Concomitant]
     Active Substance: INSULIN NOS
     Indication: HYPERGLYCAEMIA
     Route: 065
     Dates: start: 20170123
  31. CETUXIMAB. [Suspect]
     Active Substance: CETUXIMAB
     Indication: COLORECTAL CANCER METASTATIC
     Dosage: 1 IN 2 WK
     Route: 042
     Dates: start: 20170111, end: 20170111
  32. 5-FU [Suspect]
     Active Substance: FLUOROURACIL
     Indication: COLORECTAL CANCER METASTATIC
     Dosage: 1 IN 2 WK
     Route: 042
     Dates: start: 20170111, end: 20170111
  33. LEUCOVORIN. [Suspect]
     Active Substance: LEUCOVORIN
     Indication: COLORECTAL CANCER METASTATIC
     Route: 042
     Dates: start: 20160914, end: 20160914
  34. LEUCOVORIN. [Suspect]
     Active Substance: LEUCOVORIN
     Indication: COLORECTAL CANCER METASTATIC
     Route: 042
     Dates: start: 20170111, end: 20170111
  35. METRONIDAZOL [Concomitant]
     Active Substance: METRONIDAZOLE
     Route: 065
     Dates: start: 20170119
  36. VEMURAFENIB [Suspect]
     Active Substance: VEMURAFENIB
     Indication: COLORECTAL CANCER METASTATIC
     Route: 048
     Dates: start: 20170118, end: 20170118
  37. DOXICICLINA [Concomitant]
     Route: 065
     Dates: start: 20160913
  38. SECALIP [Concomitant]
     Active Substance: FENOFIBRATE
     Indication: ANURIA
     Route: 065
     Dates: start: 20170122, end: 20170123

REACTIONS (10)
  - Bacteraemia [Not Recovered/Not Resolved]
  - Hepatic infection [Recovered/Resolved]
  - Respiratory moniliasis [Unknown]
  - Mean arterial pressure decreased [Not Recovered/Not Resolved]
  - Haemoglobin decreased [Not Recovered/Not Resolved]
  - Hepatic haemorrhage [Not Recovered/Not Resolved]
  - Post procedural haemorrhage [Recovered/Resolved]
  - Pyrexia [Not Recovered/Not Resolved]
  - Bacteroides test positive [Not Recovered/Not Resolved]
  - Abdominal infection [Not Recovered/Not Resolved]

NARRATIVE: CASE EVENT DATE: 20170121
